FAERS Safety Report 8248406-7 (Version None)
Quarter: 2012Q1

REPORT INFORMATION
  Report Type: 
  Country: None (occurrence: None)
  Receive Date: 20120330
  Receipt Date: 20120316
  Transmission Date: 20120608
  Serious: Yes (Hospitalization)
  Sender: FDA-Public Use
  Company Number: PHHO2012NL004387

PATIENT
  Sex: Female
  Weight: 51 kg

DRUGS (2)
  1. MYCOPHENOLIC ACID [Suspect]
     Indication: STEM CELL TRANSPLANT
     Dosage: 1800 MG, UNK
     Route: 048
     Dates: start: 20110505, end: 20110603
  2. SANDIMMUNE [Suspect]
     Indication: STEM CELL TRANSPLANT
     Dosage: 500 MG, UNK
     Route: 048
     Dates: start: 20110502, end: 20110610

REACTIONS (2)
  - CYTOMEGALOVIRUS INFECTION [None]
  - HYPONATRAEMIA [None]
